FAERS Safety Report 24379583 (Version 2)
Quarter: 2024Q4

REPORT INFORMATION
  Report Type: Spontaneous
  Country: CN (occurrence: CN)
  Receive Date: 20240930
  Receipt Date: 20241112
  Transmission Date: 20250114
  Serious: Yes (Life-Threatening, Other)
  Sender: BAYER HEALTHCARE PHARMACEUTICALS INC.
  Company Number: CN-BAYER-2024A139029

PATIENT
  Age: 69 Year
  Sex: Female
  Weight: 62 kg

DRUGS (1)
  1. ULTRAVIST [Suspect]
     Active Substance: IOPROMIDE
     Indication: Computerised tomogram
     Dosage: 50 ML, ONCE
     Route: 042
     Dates: start: 20240927, end: 20240927

REACTIONS (4)
  - Contrast media allergy [Recovering/Resolving]
  - Dizziness [Recovering/Resolving]
  - Rash pruritic [Recovering/Resolving]
  - Respiratory rate increased [None]

NARRATIVE: CASE EVENT DATE: 20240927
